FAERS Safety Report 11167028 (Version 2)
Quarter: 2015Q4

REPORT INFORMATION
  Report Type: Other
  Country: AR (occurrence: AR)
  Receive Date: 20150605
  Receipt Date: 20151221
  Transmission Date: 20160304
  Serious: Yes (Death, Hospitalization, Other)
  Sender: FDA-Public Use
  Company Number: AR-SHIRE-AR201504808

PATIENT
  Age: 19 Year

DRUGS (1)
  1. ELAPRASE [Suspect]
     Active Substance: IDURSULFASE
     Indication: MUCOPOLYSACCHARIDOSIS II
     Dosage: UNK, UNKNOWN
     Route: 041

REACTIONS (4)
  - Respiratory failure [Unknown]
  - Respiratory tract infection [Unknown]
  - Death [Fatal]
  - Neurological decompensation [Unknown]

NARRATIVE: CASE EVENT DATE: 2015
